FAERS Safety Report 8860645 (Version 1)
Quarter: 2012Q4

REPORT INFORMATION
  Report Type: 
  Country: US (occurrence: US)
  Receive Date: 20121025
  Receipt Date: 20121025
  Transmission Date: 20130627
  Serious: No
  Sender: FDA-Public Use
  Company Number: US-ASTRAZENECA-2011SE76629

PATIENT
  Age: 62 Year
  Sex: Female

DRUGS (4)
  1. ZESTRIL [Suspect]
     Route: 048
  2. TOPROL XL [Suspect]
     Route: 048
  3. CRESTOR [Suspect]
     Route: 048
  4. BRILINTA [Concomitant]

REACTIONS (1)
  - Confusional state [Unknown]
